FAERS Safety Report 4840132-7 (Version None)
Quarter: 2005Q4

REPORT INFORMATION
  Report Type: 
  Country: None (occurrence: None)
  Receive Date: 20051125
  Receipt Date: 20051111
  Transmission Date: 20060501
  Serious: Yes (Hospitalization)
  Sender: FDA-Public Use
  Company Number: 2005BI020499

PATIENT
  Age: 77 Year
  Sex: Female

DRUGS (15)
  1. ZEVALIN [Suspect]
     Indication: NON-HODGKIN'S LYMPHOMA
     Dosage: X1; IV
     Route: 042
     Dates: start: 20050901
  2. ZEVALIN [Suspect]
     Indication: NON-HODGKIN'S LYMPHOMA
     Dosage: 27.5 MCI;X1;IV
     Route: 042
     Dates: start: 20050920, end: 20050920
  3. AMARYL [Concomitant]
  4. ATROVENT [Concomitant]
  5. LASIX [Concomitant]
  6. PREVACID [Concomitant]
  7. CARTIA XT [Concomitant]
  8. DIGITEK [Concomitant]
  9. WARFARIN [Concomitant]
  10. SOTALOL [Concomitant]
  11. ZYRTEC [Concomitant]
  12. FLOVENT [Concomitant]
  13. LIPITOR [Concomitant]
  14. MIRALAX [Concomitant]
  15. CITRUCEL [Concomitant]

REACTIONS (14)
  - BODY TEMPERATURE INCREASED [None]
  - CHOLELITHIASIS [None]
  - ECCHYMOSIS [None]
  - ELECTROCARDIOGRAM ST-T SEGMENT ABNORMAL [None]
  - GASTROINTESTINAL STOMA COMPLICATION [None]
  - HAEMATOCRIT DECREASED [None]
  - HAEMOGLOBIN DECREASED [None]
  - NODULE [None]
  - PLATELET COUNT DECREASED [None]
  - PROCEDURAL PAIN [None]
  - PURULENCE [None]
  - RASH PAPULAR [None]
  - SOFT TISSUE DISORDER [None]
  - WHITE BLOOD CELL COUNT DECREASED [None]
